FAERS Safety Report 25286052 (Version 5)
Quarter: 2025Q3

REPORT INFORMATION
  Report Type: Spontaneous
  Country: US (occurrence: US)
  Receive Date: 20250509
  Receipt Date: 20250929
  Transmission Date: 20251021
  Serious: No
  Sender: BRISTOL-MYERS SQUIBB COMPANY
  Company Number: US-BRISTOL-MYERS SQUIBB COMPANY-2025-067237

PATIENT
  Age: 61 Year
  Sex: Male

DRUGS (6)
  1. CAMZYOS [Suspect]
     Active Substance: MAVACAMTEN
     Indication: Hypertrophic cardiomyopathy
     Dates: start: 20250408
  2. CAMZYOS [Suspect]
     Active Substance: MAVACAMTEN
     Dosage: STRENGTH-10MG
  3. ROSUVASTATIN [Concomitant]
     Active Substance: ROSUVASTATIN
     Indication: Product used for unknown indication
  4. METOPROLOL [Concomitant]
     Active Substance: METOPROLOL
     Indication: Product used for unknown indication
  5. FAMOTIDINE [Concomitant]
     Active Substance: FAMOTIDINE
     Indication: Product used for unknown indication
  6. LANSOPRAZOLE [Concomitant]
     Active Substance: LANSOPRAZOLE
     Indication: Product used for unknown indication

REACTIONS (6)
  - Tinnitus [Not Recovered/Not Resolved]
  - Blood pressure increased [Unknown]
  - Prostatic disorder [Unknown]
  - Hypersensitivity [Unknown]
  - Back injury [Unknown]
  - Fatigue [Unknown]

NARRATIVE: CASE EVENT DATE: 20250430
